FAERS Safety Report 9228882 (Version 1)
Quarter: 2013Q2

REPORT INFORMATION
  Report Type: Spontaneous
  Country: US (occurrence: US)
  Receive Date: 20130412
  Receipt Date: 20130412
  Transmission Date: 20140414
  Serious: No
  Sender: FDA-Public Use
  Company Number: US-ASTRAZENECA-2013SE18662

PATIENT
  Age: 83 Year
  Sex: Female
  Weight: 57.2 kg

DRUGS (7)
  1. ATENOLOL [Suspect]
     Indication: BLOOD PRESSURE ABNORMAL
     Route: 048
     Dates: start: 2010
  2. RHINOCORT AQUA [Suspect]
     Indication: ASTHMA
     Dosage: 2 SPRAYS EACH NOSTRI QAM
     Route: 045
  3. RHINOCORT AQUA [Suspect]
     Indication: MULTIPLE ALLERGIES
     Dosage: 2 SPRAYS EACH NOSTRI QAM
     Route: 045
  4. RHINOCORT AQUA [Suspect]
     Indication: ASTHMA
     Route: 045
  5. RHINOCORT AQUA [Suspect]
     Indication: MULTIPLE ALLERGIES
     Route: 045
  6. PREMARIN [Concomitant]
     Indication: THERAPEUTIC PROCEDURE
  7. EPI-PEN [Concomitant]
     Indication: ANAPHYLACTIC REACTION

REACTIONS (2)
  - Blood pressure abnormal [Not Recovered/Not Resolved]
  - Drug ineffective [Unknown]
